FAERS Safety Report 8385213-9 (Version None)
Quarter: 2012Q2

REPORT INFORMATION
  Report Type: 
  Country: None (occurrence: None)
  Receive Date: 20120525
  Receipt Date: 20120516
  Transmission Date: 20120825
  Serious: Yes (Other)
  Sender: FDA-Public Use
  Company Number: DE-BIOGENIDEC-2012BI010212

PATIENT
  Age: 0 Day
  Sex: Female

DRUGS (1)
  1. AVONEX [Suspect]
     Indication: MATERNAL EXPOSURE TIMING UNSPECIFIED
     Route: 064
     Dates: start: 20100812, end: 20101126

REACTIONS (2)
  - UMBILICAL CORD AROUND NECK [None]
  - FOETAL HEART RATE ABNORMAL [None]
